FAERS Safety Report 22125107 (Version 1)
Quarter: 2023Q1

REPORT INFORMATION
  Report Type: Spontaneous
  Country: US (occurrence: None)
  Receive Date: 20230321
  Receipt Date: 20230321
  Transmission Date: 20230417
  Serious: Yes (Other)
  Sender: FDA-Public Use
  Company Number: None

PATIENT
  Age: 34 Year
  Sex: Female

DRUGS (1)
  1. MAKENA [Suspect]
     Active Substance: HYDROXYPROGESTERONE CAPROATE
     Indication: Premature labour
     Dosage: OTHER QUANTITY : 275MG/1.1ML;?FREQUENCY : WEEKLY;?
     Route: 058
     Dates: start: 20230109, end: 20230222

REACTIONS (5)
  - Injection site pruritus [None]
  - Injection site bruising [None]
  - Injection site induration [None]
  - Urticaria [None]
  - Therapy cessation [None]

NARRATIVE: CASE EVENT DATE: 20230222
